FAERS Safety Report 8147772 (Version 4)
Quarter: 2017Q2

REPORT INFORMATION
  Report Type: Spontaneous
  Country: US (occurrence: US)
  Receive Date: 20110922
  Receipt Date: 20170621
  Transmission Date: 20170830
  Serious: Yes (Hospitalization)
  Sender: FDA-Public Use
  Company Number: US-ASTRAZENECA-2011SE32979

PATIENT
  Age: 31 Year
  Sex: Male
  Weight: 99.8 kg

DRUGS (51)
  1. SEROQUEL XR [Suspect]
     Active Substance: QUETIAPINE FUMARATE
     Indication: PARANOIA
     Dosage: 400 DAILY
     Route: 048
  2. SEROQUEL XR [Suspect]
     Active Substance: QUETIAPINE FUMARATE
     Indication: PARANOIA
     Route: 048
     Dates: start: 201701
  3. VALIUM [Concomitant]
     Active Substance: DIAZEPAM
     Indication: SCHIZOPHRENIA
  4. TRILEPTAL [Concomitant]
     Active Substance: OXCARBAZEPINE
     Indication: MANIA
     Dosage: 300 MG IN THE MORNING AND 600 MG AT NIGHT
     Route: 048
     Dates: start: 2010
  5. SEROQUEL XR [Suspect]
     Active Substance: QUETIAPINE FUMARATE
     Indication: PARANOIA
     Route: 048
     Dates: start: 2000, end: 2006
  6. VALIUM [Concomitant]
     Active Substance: DIAZEPAM
     Indication: BIPOLAR DISORDER
  7. TRILEPTAL [Concomitant]
     Active Substance: OXCARBAZEPINE
     Indication: SCHIZOPHRENIA
     Dosage: 300 MG IN THE MORNING AND 600 MG AT NIGHT
     Route: 048
     Dates: start: 2010
  8. TRULICITY [Concomitant]
     Active Substance: DULAGLUTIDE
     Indication: BIPOLAR DISORDER
     Dosage: WEEK
     Dates: start: 2016
  9. TRULICITY [Concomitant]
     Active Substance: DULAGLUTIDE
     Indication: SCHIZOPHRENIA
     Dosage: WEEK
     Dates: start: 2016
  10. METFORMIN [Concomitant]
     Active Substance: METFORMIN HYDROCHLORIDE
     Indication: DIABETES MELLITUS
     Route: 048
     Dates: start: 2012
  11. SEROQUEL XR [Suspect]
     Active Substance: QUETIAPINE FUMARATE
     Indication: BIPOLAR DISORDER
     Route: 048
  12. SEROQUEL XR [Suspect]
     Active Substance: QUETIAPINE FUMARATE
     Indication: SCHIZOPHRENIA
     Route: 048
  13. SEROQUEL XR [Suspect]
     Active Substance: QUETIAPINE FUMARATE
     Indication: BIPOLAR DISORDER
     Dosage: 400 DAILY
     Route: 048
  14. LITHIUM. [Concomitant]
     Active Substance: LITHIUM
     Indication: DEPRESSION
  15. PROPRANOLOL [Concomitant]
     Active Substance: PROPRANOLOL HYDROCHLORIDE
     Indication: DEPRESSION
     Route: 048
     Dates: start: 2008
  16. TOPAMAX [Concomitant]
     Active Substance: TOPIRAMATE
     Indication: DEPRESSION
  17. TESTOSTERONE. [Concomitant]
     Active Substance: TESTOSTERONE
  18. RISPERIDONE. [Concomitant]
     Active Substance: RISPERIDONE
     Indication: PARANOIA
     Route: 048
  19. SEROQUEL XR [Suspect]
     Active Substance: QUETIAPINE FUMARATE
     Indication: PARANOIA
     Route: 048
  20. SEROQUEL XR [Suspect]
     Active Substance: QUETIAPINE FUMARATE
     Indication: BIPOLAR DISORDER
     Route: 048
     Dates: start: 2000, end: 2006
  21. PROPRANOLOL [Concomitant]
     Active Substance: PROPRANOLOL HYDROCHLORIDE
     Indication: BIPOLAR DISORDER
     Route: 048
     Dates: start: 2008
  22. SEROQUEL XR [Suspect]
     Active Substance: QUETIAPINE FUMARATE
     Indication: SCHIZOPHRENIA
     Dosage: 400 DAILY
     Route: 048
  23. LITHIUM. [Concomitant]
     Active Substance: LITHIUM
     Indication: SCHIZOPHRENIA
     Route: 048
  24. TRILEPTAL [Concomitant]
     Active Substance: OXCARBAZEPINE
     Indication: ANXIETY
     Dosage: 300 MG IN THE MORNING AND 600 MG AT NIGHT
     Route: 048
     Dates: start: 2010
  25. TRILEPTAL [Concomitant]
     Active Substance: OXCARBAZEPINE
     Indication: BIPOLAR DISORDER
     Dosage: 300 MG IN THE MORNING AND 600 MG AT NIGHT
     Route: 048
     Dates: start: 2010
  26. TRULICITY [Concomitant]
     Active Substance: DULAGLUTIDE
     Indication: DIABETES MELLITUS
     Dosage: WEEK
     Dates: start: 2016
  27. SEROQUEL XR [Suspect]
     Active Substance: QUETIAPINE FUMARATE
     Indication: BIPOLAR DISORDER
     Route: 048
  28. LITHIUM. [Concomitant]
     Active Substance: LITHIUM
     Indication: DEPRESSION
     Route: 048
  29. PROPRANOLOL [Concomitant]
     Active Substance: PROPRANOLOL HYDROCHLORIDE
     Indication: TREMOR
     Route: 048
     Dates: start: 2008
  30. TOPAMAX [Concomitant]
     Active Substance: TOPIRAMATE
     Indication: WEIGHT DECREASED
  31. RISPERIDONE. [Concomitant]
     Active Substance: RISPERIDONE
     Indication: BIPOLAR DISORDER
     Route: 048
  32. RISPERIDONE. [Concomitant]
     Active Substance: RISPERIDONE
     Indication: DEPRESSION
     Route: 048
  33. TRILEPTAL [Concomitant]
     Active Substance: OXCARBAZEPINE
     Indication: DEPRESSION
     Dosage: 300 MG IN THE MORNING AND 600 MG AT NIGHT
     Route: 048
     Dates: start: 2010
  34. GEMFIBROZIL. [Concomitant]
     Active Substance: GEMFIBROZIL
     Indication: BLOOD TRIGLYCERIDES ABNORMAL
     Dates: start: 2014
  35. SEROQUEL XR [Suspect]
     Active Substance: QUETIAPINE FUMARATE
     Indication: SCHIZOPHRENIA
     Route: 048
  36. SEROQUEL XR [Suspect]
     Active Substance: QUETIAPINE FUMARATE
     Indication: SCHIZOPHRENIA
     Route: 048
     Dates: start: 201701
  37. LITHIUM. [Concomitant]
     Active Substance: LITHIUM
     Indication: BIPOLAR DISORDER
     Route: 048
  38. LITHIUM. [Concomitant]
     Active Substance: LITHIUM
     Indication: BIPOLAR DISORDER
  39. LITHIUM. [Concomitant]
     Active Substance: LITHIUM
     Indication: SCHIZOPHRENIA
  40. TOPAMAX [Concomitant]
     Active Substance: TOPIRAMATE
     Indication: SCHIZOPHRENIA
  41. VALIUM [Concomitant]
     Active Substance: DIAZEPAM
     Indication: ANXIETY
  42. VALIUM [Concomitant]
     Active Substance: DIAZEPAM
     Indication: DEPRESSION
  43. RISPERIDONE. [Concomitant]
     Active Substance: RISPERIDONE
     Indication: ANXIETY
     Route: 048
  44. TRULICITY [Concomitant]
     Active Substance: DULAGLUTIDE
     Indication: DEPRESSION
     Dosage: WEEK
     Dates: start: 2016
  45. SEROQUEL XR [Suspect]
     Active Substance: QUETIAPINE FUMARATE
     Indication: SCHIZOPHRENIA
     Route: 048
     Dates: start: 2000, end: 2006
  46. SEROQUEL XR [Suspect]
     Active Substance: QUETIAPINE FUMARATE
     Indication: PARANOIA
     Route: 048
  47. SEROQUEL XR [Suspect]
     Active Substance: QUETIAPINE FUMARATE
     Indication: BIPOLAR DISORDER
     Route: 048
     Dates: start: 201701
  48. PROPRANOLOL [Concomitant]
     Active Substance: PROPRANOLOL HYDROCHLORIDE
     Indication: SCHIZOPHRENIA
     Route: 048
     Dates: start: 2008
  49. TOPAMAX [Concomitant]
     Active Substance: TOPIRAMATE
     Indication: BIPOLAR DISORDER
  50. RISPERIDONE. [Concomitant]
     Active Substance: RISPERIDONE
     Indication: SCHIZOPHRENIA
     Route: 048
  51. TRULICITY [Concomitant]
     Active Substance: DULAGLUTIDE
     Indication: ANXIETY
     Dosage: WEEK
     Dates: start: 2016

REACTIONS (11)
  - Therapy cessation [Unknown]
  - Off label use [Unknown]
  - Sleep disorder [Unknown]
  - Hallucination, auditory [Unknown]
  - Mania [Recovered/Resolved]
  - Loss of personal independence in daily activities [Recovered/Resolved]
  - Diabetes mellitus [Unknown]
  - Drug dose omission [Unknown]
  - Blood triglycerides abnormal [Unknown]
  - Drug hypersensitivity [Unknown]
  - Tremor [Unknown]

NARRATIVE: CASE EVENT DATE: 2003
